FAERS Safety Report 8380352-0 (Version None)
Quarter: 2012Q2

REPORT INFORMATION
  Report Type: 
  Country: None (occurrence: None)
  Receive Date: 20120523
  Receipt Date: 20120515
  Transmission Date: 20120825
  Serious: No
  Sender: FDA-Public Use
  Company Number: US-ASTRAZENECA-2011SE42378

PATIENT
  Age: 68 Year
  Sex: Female
  Weight: 76.7 kg

DRUGS (10)
  1. BYSTOLIC [Concomitant]
  2. MULTI-VITAMINS [Concomitant]
  3. CALCIUM [Concomitant]
  4. DIOVAN [Concomitant]
  5. VITAMIN D [Concomitant]
  6. ZESTRIL [Suspect]
     Route: 048
  7. HYDROCHLOROTHIAZIDE [Concomitant]
  8. DILTIAZEM HCL [Concomitant]
  9. NEXIUM [Suspect]
     Indication: GASTROOESOPHAGEAL REFLUX DISEASE
     Route: 048
     Dates: start: 20110101, end: 20110713
  10. NEXIUM [Suspect]
     Route: 048
     Dates: start: 20110713

REACTIONS (4)
  - COUGH [None]
  - INTENTIONAL DRUG MISUSE [None]
  - GASTROOESOPHAGEAL REFLUX DISEASE [None]
  - DRUG INEFFECTIVE [None]
